FAERS Safety Report 6429191-8 (Version None)
Quarter: 2009Q4

REPORT INFORMATION
  Report Type: 
  Country: None (occurrence: None)
  Receive Date: 20091105
  Receipt Date: 20091028
  Transmission Date: 20100525
  Serious: Yes (Hospitalization)
  Sender: FDA-Public Use
  Company Number: BE-GENENTECH-288134

PATIENT
  Sex: Female
  Weight: 100.6 kg

DRUGS (4)
  1. TRASTUZUMAB [Suspect]
     Indication: BREAST CANCER
     Dosage: 680 MG, Q3W
     Route: 042
     Dates: start: 20090619
  2. AVASTIN [Suspect]
     Indication: BREAST CANCER
     Dosage: 1700 MG, Q3W
     Route: 042
     Dates: start: 20090619
  3. CARBOPLATIN [Suspect]
     Indication: BREAST CANCER
     Dosage: 700 MG, Q3W
     Route: 042
     Dates: start: 20090619
  4. DOCETAXEL [Suspect]
     Indication: BREAST CANCER
     Dosage: 150 MG, Q3W
     Route: 042
     Dates: start: 20090619

REACTIONS (4)
  - DEHYDRATION [None]
  - DIARRHOEA [None]
  - NAUSEA [None]
  - THROMBOCYTOPENIA [None]
